FAERS Safety Report 24462359 (Version 1)
Quarter: 2024Q4

REPORT INFORMATION
  Report Type: Spontaneous
  Country: SK (occurrence: SK)
  Receive Date: 20241018
  Receipt Date: 20241018
  Transmission Date: 20250114
  Serious: No
  Sender: ROCHE
  Company Number: SK-ROCHE-3572912

PATIENT
  Age: 60 Year
  Sex: Female

DRUGS (3)
  1. RITUXIMAB [Suspect]
     Active Substance: RITUXIMAB
     Indication: Thrombotic thrombocytopenic purpura
     Route: 041
  2. CAPLACIZUMAB [Concomitant]
     Active Substance: CAPLACIZUMAB
     Indication: Thrombotic thrombocytopenic purpura
     Route: 042
  3. CAPLACIZUMAB [Concomitant]
     Active Substance: CAPLACIZUMAB
     Route: 058
     Dates: end: 20230123

REACTIONS (2)
  - Off label use [Unknown]
  - Ophthalmic herpes simplex [Recovered/Resolved]
